FAERS Safety Report 20150492 (Version 1)
Quarter: 2021Q4

REPORT INFORMATION
  Report Type: Spontaneous
  Country: DE (occurrence: DE)
  Receive Date: 20211206
  Receipt Date: 20211206
  Transmission Date: 20220303
  Serious: No
  Sender: FDA-Public Use
  Company Number: None

PATIENT
  Age: 79 Year
  Sex: Male

DRUGS (2)
  1. SOLIFENACIN [Suspect]
     Active Substance: SOLIFENACIN
     Indication: Micturition urgency
     Dosage: 5 MILLIGRAM, OD
     Route: 048
  2. TAMSULOSIN [Concomitant]
     Active Substance: TAMSULOSIN
     Indication: Benign prostatic hyperplasia
     Dosage: 0.4 MILLIGRAM, OD
     Route: 048

REACTIONS (2)
  - Micturition urgency [Not Recovered/Not Resolved]
  - Treatment noncompliance [Unknown]
